FAERS Safety Report 11440554 (Version 1)
Quarter: 2015Q3

REPORT INFORMATION
  Report Type: Report from Study
  Country: KW (occurrence: KW)
  Receive Date: 20150901
  Receipt Date: 20150901
  Transmission Date: 20151125
  Serious: Yes (Death)
  Sender: FDA-Public Use
  Company Number: KW-ABBVIE-15P-091-1454963-00

PATIENT
  Age: 50 Year
  Sex: Female
  Weight: 52 kg

DRUGS (1)
  1. HUMIRA [Suspect]
     Active Substance: ADALIMUMAB
     Indication: CROHN^S DISEASE
     Route: 058
     Dates: start: 201406, end: 20150811

REACTIONS (2)
  - Weight decreased [Fatal]
  - Decreased appetite [Fatal]
